FAERS Safety Report 24284504 (Version 1)
Quarter: 2024Q3

REPORT INFORMATION
  Report Type: Spontaneous
  Country: CN (occurrence: CN)
  Receive Date: 20240905
  Receipt Date: 20240905
  Transmission Date: 20241017
  Serious: Yes (Other)
  Sender: Unknown Manufacturer
  Company Number: CN-AstraZeneca-2024A194043

PATIENT

DRUGS (2)
  1. METOPROLOL [Suspect]
     Active Substance: METOPROLOL
     Indication: Essential hypertension
     Dosage: 1 DOSAGE FORM, QD
     Route: 048
     Dates: start: 20240622, end: 20240819
  2. LIPITOR [Suspect]
     Active Substance: ATORVASTATIN CALCIUM
     Indication: Essential hypertension
     Dosage: 1 DOSAGE FORM, QD
     Route: 048
     Dates: start: 20240622, end: 20240819

REACTIONS (1)
  - Liver injury [Unknown]

NARRATIVE: CASE EVENT DATE: 20240717
